FAERS Safety Report 7377869-4 (Version None)
Quarter: 2011Q1

REPORT INFORMATION
  Report Type: 
  Country: None (occurrence: None)
  Receive Date: 20110328
  Receipt Date: 20110317
  Transmission Date: 20110831
  Serious: Yes (Death)
  Sender: FDA-Public Use
  Company Number: NZ-NOVOPROD-322361

PATIENT
  Weight: 80 kg

DRUGS (3)
  1. NOVOSEVEN RT [Suspect]
     Indication: PRODUCT USED FOR UNKNOWN INDICATION
     Dosage: 8 MG, QD
     Route: 065
     Dates: start: 20110118
  2. ANTICOAGULANT CIT PHOS DEX ADENINE [Concomitant]
  3. EPOGEN [Concomitant]

REACTIONS (1)
  - DEATH [None]
